FAERS Safety Report 20057172 (Version 1)
Quarter: 2021Q4

REPORT INFORMATION
  Report Type: Spontaneous
  Country: US (occurrence: None)
  Receive Date: 20211110
  Receipt Date: 20211110
  Transmission Date: 20220303
  Serious: No
  Sender: FDA-Public Use
  Company Number: None

PATIENT
  Age: 68 Year
  Sex: Female

DRUGS (1)
  1. GLATIRAMER ACETATE [Suspect]
     Active Substance: GLATIRAMER ACETATE
     Dosage: FREQUENCY : 3 TIMES A DAY;?
     Route: 058
     Dates: start: 201710

REACTIONS (4)
  - Flushing [None]
  - Palpitations [None]
  - Thirst [None]
  - Feeling hot [None]

NARRATIVE: CASE EVENT DATE: 20210501
